FAERS Safety Report 21277203 (Version 2)
Quarter: 2023Q1

REPORT INFORMATION
  Report Type: Spontaneous
  Country: US (occurrence: US)
  Receive Date: 20220831
  Receipt Date: 20230208
  Transmission Date: 20230417
  Serious: No
  Sender: FDA-Public Use
  Company Number: US-ABBVIE-22K-163-4316935-00

PATIENT
  Sex: Female
  Weight: 124 kg

DRUGS (16)
  1. HUMIRA [Suspect]
     Active Substance: ADALIMUMAB
     Indication: Hidradenitis
     Dosage: THERAPY START DATE WAS FEB 2022 AND END DATE WAS FEB 2022. FORM STRENGTH: 80 MILLIGRAM. DAY 1, 2 ...
     Route: 058
  2. HUMIRA [Suspect]
     Active Substance: ADALIMUMAB
     Dosage: FORM STRENGTH: 80 MILLIGRAM. DAY 14,?THERAPY START DATE WAS 2022.
     Route: 058
  3. VIIBRYD [Concomitant]
     Active Substance: VILAZODONE HYDROCHLORIDE
     Indication: Product used for unknown indication
     Dosage: TAKE 1 TABLET(S) BY MOUTH DAILY WITH FOOD
     Route: 048
  4. Alprazolam 3 mg [Concomitant]
     Indication: Product used for unknown indication
     Dosage: TAKE 1 TABLET(S) BY MOUTH DAILY
     Route: 048
  5. METOPROLOL TARTRATE [Concomitant]
     Active Substance: METOPROLOL TARTRATE
     Indication: Product used for unknown indication
     Dosage: [TAKE 1 TABLET(S) BY MOUTH DAILY]
     Route: 048
  6. ALPRAZOLAM [Concomitant]
     Active Substance: ALPRAZOLAM
     Indication: Product used for unknown indication
     Dosage: 1 PO QD
     Route: 048
  7. Cetirizine10 mg [Concomitant]
     Indication: Product used for unknown indication
     Dosage: TAKE 1 TABLET(S) BY MOUTH
     Route: 048
  8. LAMOTRIGINE [Concomitant]
     Active Substance: LAMOTRIGINE
     Indication: Product used for unknown indication
     Dosage: TAKE 1 TABLET DAILY
     Route: 048
  9. VENTOLIN HFA [Concomitant]
     Active Substance: ALBUTEROL SULFATE
     Indication: Product used for unknown indication
     Dosage: 90 MCG/ACTUATION INHALATION HFA AEROSOL INHALER
  10. FLUTICASONE PROPIONATE [Concomitant]
     Active Substance: FLUTICASONE PROPIONATE
     Indication: Product used for unknown indication
     Dosage: TAKE 1 INHALATION(S) BY MOUTH BID
  11. OMEPRAZOLE [Concomitant]
     Active Substance: OMEPRAZOLE
     Indication: Product used for unknown indication
     Dosage: TAKE 1 TABLET(S) BY MOUTH DAILY, DELAYED RELEASE
     Route: 048
  12. Dicyclomine 10 mg [Concomitant]
     Indication: Product used for unknown indication
     Dosage: TAKE 1 CAPSULE BID
     Route: 048
  13. CLINDAMYCIN PHOSPHATE [Concomitant]
     Active Substance: CLINDAMYCIN PHOSPHATE
     Indication: Product used for unknown indication
     Dosage: 1 % TOPICAL GEL
  14. TRIAMCINOLONE ACETONIDE [Concomitant]
     Active Substance: TRIAMCINOLONE ACETONIDE
     Indication: Product used for unknown indication
     Dosage: 0.1 % TOPICAL CREAM, 454 GRAMS
  15. TETANUS TOXOID, REDUCED DIPHTHERIA TOXOID AND ACELLULAR PERTUSSIS VACC [Concomitant]
     Active Substance: TETANUS TOXOID, REDUCED DIPHTHERIA TOXOID AND ACELLULAR PERTUSSIS VACCINE ADSORBED, TDAP
     Indication: Product used for unknown indication
     Dosage: VACCINE
     Route: 030
  16. NICOTINE [Suspect]
     Active Substance: NICOTINE
     Indication: Product used for unknown indication
     Route: 065

REACTIONS (5)
  - Weight increased [Unknown]
  - Skin papilloma [Unknown]
  - Dermatitis atopic [Unknown]
  - Hepatitis A [Unknown]
  - Nicotine dependence [Unknown]
